FAERS Safety Report 20519777 (Version 1)
Quarter: 2022Q1

REPORT INFORMATION
  Report Type: Spontaneous
  Country: NL (occurrence: None)
  Receive Date: 20220225
  Receipt Date: 20220225
  Transmission Date: 20220423
  Serious: Yes (Death)
  Sender: FDA-Public Use
  Company Number: 2022A085094

PATIENT
  Age: 78 Year
  Sex: Male

DRUGS (5)
  1. QUETIAPINE [Suspect]
     Active Substance: QUETIAPINE
     Indication: Anxiety
     Dosage: 2DD1, MORNING AND EVENING
     Route: 065
     Dates: start: 2022
  2. CITALOPRAM [Suspect]
     Active Substance: CITALOPRAM HYDROBROMIDE
     Indication: Depression
     Dosage: 1DD1 AT 21:00 IN THE EVENING
     Route: 065
     Dates: start: 202202
  3. AMLODIPINE [Concomitant]
     Active Substance: AMLODIPINE BESYLATE
     Dosage: TABLET, 5 MG (MILLIGRAM)
  4. TEMAZEPAM [Concomitant]
     Active Substance: TEMAZEPAM
     Dosage: CAPSULE, 20 MG (MILLIGRAM)
  5. VALPROIC ACID [Concomitant]
     Active Substance: VALPROIC ACID
     Dosage: GASTRO-RESISTANT TABLET, 300 MG (MILLIGRAMS)

REACTIONS (2)
  - Suicidal ideation [Fatal]
  - Loss of libido [Recovered/Resolved]

NARRATIVE: CASE EVENT DATE: 20220201
